FAERS Safety Report 5587199-9 (Version None)
Quarter: 2008Q1

REPORT INFORMATION
  Report Type: 
  Country: None (occurrence: None)
  Receive Date: 20080110
  Receipt Date: 20070123
  Transmission Date: 20080703
  Serious: No
  Sender: FDA-Public Use
  Company Number: US-BRISTOL-MYERS SQUIBB COMPANY-13653761

PATIENT
  Age: 52 Year
  Sex: Female
  Weight: 54 kg

DRUGS (1)
  1. CARDIOLITE INJ [Suspect]
     Indication: SCAN PARATHYROID
     Route: 042
     Dates: start: 20061223, end: 20061223

REACTIONS (3)
  - ASTHENIA [None]
  - DIZZINESS [None]
  - DYSSTASIA [None]
